FAERS Safety Report 9672390 (Version 1)
Quarter: 2013Q4

REPORT INFORMATION
  Report Type: Spontaneous
  Country: SE (occurrence: None)
  Receive Date: 20131105
  Receipt Date: 20131105
  Transmission Date: 20140711
  Serious: Yes (Hospitalization)
  Sender: FDA-Public Use
  Company Number: SYM-2013-12267

PATIENT
  Age: 53 Year
  Sex: Female

DRUGS (3)
  1. FLAGYL [Suspect]
     Indication: VAGINAL INFECTION
     Dosage: 3 DOSAGE FORM, DAILY, ORAL
     Route: 048
     Dates: start: 20130318, end: 20130321
  2. FLAGYL [Suspect]
     Indication: ABDOMINAL PAIN
     Dosage: 3 DOSAGE FORM, DAILY, ORAL
     Route: 048
     Dates: start: 20130318, end: 20130321
  3. ALVEDON (PARACETAMOL) (PARACETAMOL) [Concomitant]

REACTIONS (10)
  - Chills [None]
  - Malaise [None]
  - Myalgia [None]
  - Urinary tract infection [None]
  - Fungal infection [None]
  - Hypoaesthesia [None]
  - Muscle spasms [None]
  - Respiratory disorder [None]
  - Paraesthesia [None]
  - Feeling cold [None]
